FAERS Safety Report 9142394 (Version 2)
Quarter: 2013Q2

REPORT INFORMATION
  Report Type: Spontaneous
  Country: US (occurrence: US)
  Receive Date: 20130306
  Receipt Date: 20130402
  Transmission Date: 20140414
  Serious: Yes (Other)
  Sender: FDA-Public Use
  Company Number: US-BIOGENIDEC-2013BI020221

PATIENT
  Age: 49 Year
  Sex: Female

DRUGS (4)
  1. TYSABRI [Suspect]
     Indication: MULTIPLE SCLEROSIS
     Route: 042
     Dates: start: 20101117, end: 201301
  2. LEXAPRO [Concomitant]
  3. VALIUM [Concomitant]
  4. HYDROCODONE [Concomitant]

REACTIONS (1)
  - Lung adenocarcinoma [Not Recovered/Not Resolved]
